FAERS Safety Report 8455068-2 (Version None)
Quarter: 2012Q2

REPORT INFORMATION
  Report Type: 
  Country: None (occurrence: None)
  Receive Date: 20120615
  Receipt Date: 20120615
  Transmission Date: 20120825
  Serious: No
  Sender: FDA-Public Use
  Company Number: None

PATIENT

DRUGS (1)
  1. LYRICA [Suspect]
     Indication: NEURITIS
     Dates: start: 20080101

REACTIONS (3)
  - HEART RATE INCREASED [None]
  - BLOOD PRESSURE DECREASED [None]
  - SYNCOPE [None]
